FAERS Safety Report 6295723-6 (Version None)
Quarter: 2009Q3

REPORT INFORMATION
  Report Type: 
  Country: None (occurrence: None)
  Receive Date: 20090731
  Receipt Date: 20090715
  Transmission Date: 20100115
  Serious: Yes (Congenital Anomaly)
  Sender: FDA-Public Use
  Company Number: 2009PL000251

PATIENT

DRUGS (3)
  1. IMURAN [Suspect]
     Indication: CROHN'S DISEASE
     Dosage: 150 MG; QD; TRPL
     Route: 064
  2. PENTASA [Suspect]
     Dosage: ; TRPL
     Route: 064
  3. ENTOCORT [Suspect]
     Dosage: ; TRPL
     Route: 064

REACTIONS (3)
  - HEART DISEASE CONGENITAL [None]
  - MATERNAL DRUGS AFFECTING FOETUS [None]
  - PREGNANCY [None]
